FAERS Safety Report 9028582 (Version 2)
Quarter: 2013Q1

REPORT INFORMATION
  Report Type: Spontaneous
  Country: FR (occurrence: FR)
  Receive Date: 20130124
  Receipt Date: 20130327
  Transmission Date: 20140127
  Serious: Yes (Other)
  Sender: FDA-Public Use
  Company Number: FR-GLAXOSMITHKLINE-B0858732A

PATIENT
  Sex: Female
  Weight: 55 kg

DRUGS (5)
  1. FLIXOTIDE [Suspect]
     Indication: ASTHMA
     Dosage: 500MCG TWICE PER DAY
     Route: 055
  2. TRIMEBUTINE [Concomitant]
     Indication: GASTROINTESTINAL DISORDER
     Dosage: 200MG THREE TIMES PER DAY
     Route: 048
  3. OGAST [Concomitant]
     Indication: DYSPEPSIA
     Dosage: 15MG PER DAY
     Route: 048
  4. VOLTARENE [Concomitant]
     Indication: ARTHRITIS
     Dosage: 100UNIT PER DAY
     Route: 048
  5. DAFALGAN [Concomitant]
     Indication: ARTHRALGIA
     Dosage: 1G TWICE PER DAY
     Route: 048

REACTIONS (6)
  - Asthmatic crisis [Recovering/Resolving]
  - Painful respiration [Recovering/Resolving]
  - Drug ineffective [Recovering/Resolving]
  - Product quality issue [Unknown]
  - Cough [Recovering/Resolving]
  - Non-cardiac chest pain [Recovering/Resolving]
